FAERS Safety Report 23257333 (Version 1)
Quarter: 2023Q4

REPORT INFORMATION
  Report Type: Other
  Country: GB (occurrence: None)
  Receive Date: 20231204
  Receipt Date: 20231204
  Transmission Date: 20240110
  Serious: Yes (Other)
  Sender: FDA-Public Use
  Company Number: GB-ROCHE-3435232

PATIENT
  Sex: Female

DRUGS (4)
  1. TOCILIZUMAB [Suspect]
     Active Substance: TOCILIZUMAB
     Indication: Giant cell arteritis
     Route: 058
     Dates: start: 2023
  2. PREDNISOLONE [Concomitant]
     Active Substance: PREDNISOLONE
     Dosage: IT IS TO BE REDUCED BY 1MG EVERY 2 MONTHS UNTIL 3 MG MAINTAINS
     Dates: start: 20231120
  3. CLINDAMYCIN [Concomitant]
     Active Substance: CLINDAMYCIN
     Indication: Urosepsis
  4. DOXYCYCLINE [Concomitant]
     Active Substance: DOXYCYCLINE
     Indication: Urosepsis

REACTIONS (2)
  - Infection [Recovered/Resolved]
  - Pain of skin [Recovered/Resolved]
